FAERS Safety Report 24652118 (Version 1)
Quarter: 2024Q4

REPORT INFORMATION
  Report Type: Spontaneous
  Country: US (occurrence: US)
  Receive Date: 20241122
  Receipt Date: 20241122
  Transmission Date: 20250115
  Serious: No
  Sender: ALVOGEN
  Company Number: US-ALVOGEN-2024093129

PATIENT
  Age: 68 Year
  Sex: Male

DRUGS (2)
  1. TERIPARATIDE [Suspect]
     Active Substance: TERIPARATIDE
     Indication: Osteoporosis
     Dosage: DISPENSED ON 15DEC2023 AS 3 MONTH^S SUPPLY.?EXP DATE: OCT-2024?250 MCG/ML
     Route: 058
  2. TERIPARATIDE [Suspect]
     Active Substance: TERIPARATIDE
     Indication: Osteoporosis
     Dosage: USING IT FOR ALMOST TWO YEARS NOW?STRENGTH: 250 MCG/ML
     Route: 058

REACTIONS (3)
  - Device malfunction [Unknown]
  - Device operational issue [Unknown]
  - Product dose omission issue [Unknown]

NARRATIVE: CASE EVENT DATE: 20240218
